FAERS Safety Report 7315446-1 (Version None)
Quarter: 2011Q1

REPORT INFORMATION
  Report Type: 
  Country: None (occurrence: None)
  Receive Date: 20110225
  Receipt Date: 20110215
  Transmission Date: 20110831
  Serious: Yes (Other)
  Sender: FDA-Public Use
  Company Number: US-ELI_LILLY_AND_COMPANY-US201102004293

PATIENT
  Age: 8 Year
  Sex: Male

DRUGS (3)
  1. LANTUS [Concomitant]
  2. HUMALOG [Suspect]
     Indication: DIABETES MELLITUS
     Dosage: UNK, AS NEEDED
     Dates: start: 20090601
  3. HUMALOG [Suspect]
     Dosage: 25 U, DAILY (1/D)
     Dates: start: 20090601

REACTIONS (2)
  - HYPOGLYCAEMIC UNCONSCIOUSNESS [None]
  - HYPOGLYCAEMIC SEIZURE [None]
